FAERS Safety Report 13420329 (Version 1)
Quarter: 2017Q2

REPORT INFORMATION
  Report Type: Spontaneous
  Country: US (occurrence: US)
  Receive Date: 20170407
  Receipt Date: 20170407
  Transmission Date: 20170830
  Serious: Yes (Hospitalization)
  Sender: FDA-Public Use
  Company Number: US-APOTEX-2017AP009283

PATIENT
  Age: 67 Year
  Sex: Female
  Weight: 70.8 kg

DRUGS (1)
  1. ARIPIPRAZOLE TABLETS [Suspect]
     Active Substance: ARIPIPRAZOLE
     Indication: ANTIOESTROGEN THERAPY
     Route: 065

REACTIONS (3)
  - Dysstasia [Recovered/Resolved]
  - Product use in unapproved indication [Unknown]
  - Vertigo [Recovered/Resolved]

NARRATIVE: CASE EVENT DATE: 201609
